FAERS Safety Report 9753193 (Version 3)
Quarter: 2015Q2

REPORT INFORMATION
  Report Type: Spontaneous
  Country: US (occurrence: US)
  Receive Date: 20131213
  Receipt Date: 20150518
  Transmission Date: 20150821
  Serious: Yes (Life-Threatening, Hospitalization, Congenital Anomaly, Other)
  Sender: FDA-Public Use
  Company Number: US-ELI_LILLY_AND_COMPANY-US201312003202

PATIENT
  Age: 8 Month

DRUGS (2)
  1. PROGESTERONE. [Concomitant]
     Active Substance: PROGESTERONE
     Dosage: 25 MG, BID
     Route: 065
  2. PROZAC [Suspect]
     Active Substance: FLUOXETINE HYDROCHLORIDE
     Indication: PRODUCT USED FOR UNKNOWN INDICATION
     Dosage: 1 DF, UNKNOWN
     Route: 064

REACTIONS (23)
  - Patent ductus arteriosus [Unknown]
  - Cardiac arrest [Recovered/Resolved]
  - Endocarditis enterococcal [Unknown]
  - Seizure [Recovered/Resolved]
  - Cardiac murmur [Unknown]
  - Ventricular fibrillation [Unknown]
  - Pleural effusion [Recovered/Resolved]
  - Arterial occlusive disease [Unknown]
  - Diaphragmatic paralysis [Unknown]
  - Foetal exposure timing unspecified [Recovered/Resolved]
  - Pleural effusion [Unknown]
  - Subdural haemorrhage [Unknown]
  - Hypoplastic left heart syndrome [Unknown]
  - Cardiomegaly [Unknown]
  - Pulmonary oedema [Unknown]
  - Hydronephrosis [Recovered/Resolved]
  - Coarctation of the aorta [Unknown]
  - Venous occlusion [Unknown]
  - Porencephaly [Unknown]
  - Deep vein thrombosis [Unknown]
  - Atrial septal defect [Unknown]
  - Coronary artery occlusion [Unknown]
  - Cardiac failure congestive [Unknown]

NARRATIVE: CASE EVENT DATE: 20070620
